FAERS Safety Report 9666250 (Version 4)
Quarter: 2014Q1

REPORT INFORMATION
  Report Type: Spontaneous
  Country: US (occurrence: US)
  Receive Date: 20131104
  Receipt Date: 20140116
  Transmission Date: 20141002
  Serious: No
  Sender: FDA-Public Use
  Company Number: US-TEVA-345780USA

PATIENT
  Sex: Female

DRUGS (4)
  1. CLARAVIS [Suspect]
     Indication: ACNE
     Dosage: SECOND MONTH
     Dates: start: 2011, end: 2011
  2. CLARAVIS [Suspect]
     Dosage: FIRST MONTH
     Dates: start: 2011, end: 2011
  3. CLARAVIS [Suspect]
     Route: 048
     Dates: start: 20111010, end: 20120404
  4. TYLENOL [Concomitant]

REACTIONS (12)
  - Depression [Unknown]
  - Headache [Unknown]
  - Ear pain [Unknown]
  - Anger [Unknown]
  - Energy increased [Unknown]
  - Insomnia [Unknown]
  - Tension [Unknown]
  - Facial pain [Unknown]
  - Sensation of pressure [Unknown]
  - Migraine [Unknown]
  - Dizziness [Unknown]
  - Neck pain [Unknown]
